FAERS Safety Report 9318416 (Version 1)
Quarter: 2013Q2

REPORT INFORMATION
  Report Type: Spontaneous
  Country: US (occurrence: None)
  Receive Date: 20130524
  Receipt Date: 20130524
  Transmission Date: 20140414
  Serious: Yes (Life-Threatening)
  Sender: FDA-Public Use
  Company Number: FK201301655

PATIENT
  Age: 18 Year
  Sex: Female

DRUGS (2)
  1. INTRALIPID [Suspect]
     Indication: PRODUCT USED FOR UNKNOWN INDICATION
  2. TRAVASOL [Suspect]
     Indication: PRODUCT USED FOR UNKNOWN INDICATION

REACTIONS (2)
  - Anaphylactic shock [None]
  - Infusion related reaction [None]
